FAERS Safety Report 10649600 (Version 1)
Quarter: 2014Q4

REPORT INFORMATION
  Report Type: Spontaneous
  Country: US (occurrence: None)
  Receive Date: 20141205
  Receipt Date: 20141205
  Transmission Date: 20150529
  Serious: No
  Sender: FDA-Public Use
  Company Number: USA-2014095190

PATIENT
  Sex: Female

DRUGS (8)
  1. IBUPROFEN. [Concomitant]
     Active Substance: IBUPROFEN
  2. POMALYST [Suspect]
     Active Substance: POMALIDOMIDE
     Indication: PLASMA CELL MYELOMA
     Dosage: 4 MG, 21 IN 21 D, PO
     Route: 048
     Dates: start: 20130617
  3. BABY ASPIRIN(ACETYLSALICYLIC ACID) [Concomitant]
  4. GABAPENTIN(GABAPENTIN) [Concomitant]
  5. LISINOPRIL(LISINOPRIL) [Concomitant]
     Active Substance: LISINOPRIL
  6. LUMIGAN(BIMATOPROST) [Concomitant]
  7. DIPHENHYDRAMINE [Concomitant]
     Active Substance: DIPHENHYDRAMINE
  8. BRIMONIDINE(TIMOLOL, BRIMONIDINE) [Concomitant]

REACTIONS (1)
  - Tooth infection [None]
